FAERS Safety Report 16397022 (Version 3)
Quarter: 2019Q3

REPORT INFORMATION
  Report Type: Spontaneous
  Country: JP (occurrence: JP)
  Receive Date: 20190606
  Receipt Date: 20190809
  Transmission Date: 20191004
  Serious: Yes (Other)
  Sender: FDA-Public Use
  Company Number: JP-AMGEN-JPNSP2019089246

PATIENT
  Age: 86 Year
  Sex: Female

DRUGS (3)
  1. CALCIUM LACTATE [Suspect]
     Active Substance: CALCIUM LACTATE
     Indication: PRODUCT USED FOR UNKNOWN INDICATION
     Dosage: UNK
     Route: 065
     Dates: start: 2017
  2. PRALIA [Suspect]
     Active Substance: DENOSUMAB
     Indication: OSTEOPOROSIS
     Dosage: UNK
     Route: 065
     Dates: start: 2017
  3. ALFACALCIDOL [Suspect]
     Active Substance: ALFACALCIDOL
     Indication: PRODUCT USED FOR UNKNOWN INDICATION
     Dosage: UNK
     Route: 065
     Dates: start: 2017

REACTIONS (2)
  - Renal impairment [Unknown]
  - Hypercalcaemia [Unknown]

NARRATIVE: CASE EVENT DATE: 2017
